FAERS Safety Report 9127666 (Version 1)
Quarter: 2013Q1

REPORT INFORMATION
  Report Type: Spontaneous
  Country: US (occurrence: US)
  Receive Date: 20130125
  Receipt Date: 20130125
  Transmission Date: 20140127
  Serious: Yes (Life-Threatening, Other)
  Sender: FDA-Public Use
  Company Number: US-MYLANLABS-2013S1001036

PATIENT
  Age: 62 Year
  Sex: Male

DRUGS (4)
  1. METOPROLOL TARTRATE TABLETS, USP [Suspect]
     Indication: BLOOD PRESSURE INCREASED
     Route: 048
     Dates: end: 20130112
  2. METOPROLOL TARTRATE TABLETS, USP [Suspect]
     Indication: BLOOD PRESSURE INCREASED
     Route: 048
     Dates: start: 20130113, end: 20130113
  3. PROZAC [Suspect]
     Indication: DEPRESSION
     Route: 048
     Dates: start: 20130107
  4. TERAZOSIN [Concomitant]
     Indication: PROSTATOMEGALY

REACTIONS (4)
  - Suicide attempt [Recovered/Resolved]
  - Intentional overdose [Recovered/Resolved]
  - Depression [Not Recovered/Not Resolved]
  - Dizziness [Recovered/Resolved]
